FAERS Safety Report 12450280 (Version 1)
Quarter: 2016Q2

REPORT INFORMATION
  Report Type: Spontaneous
  Country: US (occurrence: None)
  Receive Date: 20160608
  Receipt Date: 20160608
  Transmission Date: 20160815
  Serious: Yes (Disabling, Other)
  Sender: FDA-Public Use
  Company Number: None

PATIENT
  Age: 53 Year
  Sex: Female
  Weight: 83.92 kg

DRUGS (6)
  1. SOMA [Concomitant]
     Active Substance: CARISOPRODOL
  2. ASPIIRIN [Concomitant]
  3. TYKENOL [Concomitant]
  4. VIT D 3 [Concomitant]
  5. FISH OIL [Concomitant]
     Active Substance: FISH OIL
  6. OXYCODONE HCL 5MG TAB AURO, 5 MG AUROBINDO [Suspect]
     Active Substance: OXYCODONE HYDROCHLORIDE
     Indication: PAIN
     Dosage: 180 TABLET(S) EVERY 4 HOURS TAKEN BY MOUTH
     Route: 048
     Dates: start: 20160108, end: 20160122

REACTIONS (7)
  - Back pain [None]
  - Headache [None]
  - Eye irritation [None]
  - Bedridden [None]
  - Vision blurred [None]
  - Neck pain [None]
  - Myalgia [None]

NARRATIVE: CASE EVENT DATE: 20160108
